FAERS Safety Report 5125114-2 (Version None)
Quarter: 2006Q4

REPORT INFORMATION
  Report Type: 
  Country: None (occurrence: None)
  Receive Date: 20061010
  Receipt Date: 20061010
  Transmission Date: 20070319
  Serious: Yes (Hospitalization)
  Sender: FDA-Public Use
  Company Number: None

PATIENT
  Age: 67 Year
  Sex: Male

DRUGS (6)
  1. DOCETAXEL [Suspect]
     Indication: NON-SMALL CELL LUNG CANCER
     Dosage: 72 MG DAYS: 1, 8, 15 IV DRIP [RECEIVED ONLY 1 DOSE]
     Route: 041
     Dates: start: 20060814, end: 20060814
  2. CAPECITABINE [Suspect]
     Indication: NON-SMALL CELL LUNG CANCER
     Dosage: 1250MG DAYS 5-14 PO
     Route: 048
  3. LOVENOX [Concomitant]
  4. DILTIAZEM HCL [Concomitant]
  5. ZETIA [Concomitant]
  6. VICODEN [Concomitant]

REACTIONS (11)
  - ATRIAL FIBRILLATION [None]
  - BALANCE DISORDER [None]
  - CONDITION AGGRAVATED [None]
  - CONFUSIONAL STATE [None]
  - DYSPNOEA [None]
  - FALL [None]
  - HAEMATOCRIT DECREASED [None]
  - HAEMOGLOBIN DECREASED [None]
  - HEART RATE INCREASED [None]
  - HEART RATE IRREGULAR [None]
  - WHITE BLOOD CELL COUNT INCREASED [None]
